FAERS Safety Report 6139600-X (Version None)
Quarter: 2009Q1

REPORT INFORMATION
  Report Type: 
  Country: None (occurrence: None)
  Receive Date: 20090330
  Receipt Date: 20090330
  Transmission Date: 20090719
  Serious: Yes (Hospitalization)
  Sender: FDA-Public Use
  Company Number: None

PATIENT
  Age: 81 Year
  Sex: Male

DRUGS (1)
  1. HYDROXYUREA [Suspect]
     Indication: THROMBOCYTHAEMIA
     Dosage: MG EVERY DAY PO
     Route: 048
     Dates: start: 20090109

REACTIONS (4)
  - ANAEMIA [None]
  - DRUG INEFFECTIVE [None]
  - LEUKOPENIA [None]
  - PYREXIA [None]
